FAERS Safety Report 9414659 (Version 1)
Quarter: 2013Q3

REPORT INFORMATION
  Report Type: Spontaneous
  Country: FR (occurrence: FR)
  Receive Date: 20130723
  Receipt Date: 20130723
  Transmission Date: 20140515
  Serious: Yes (Hospitalization)
  Sender: FDA-Public Use
  Company Number: FR-PFIZER INC-2013208085

PATIENT
  Age: 61 Year
  Sex: Male

DRUGS (10)
  1. TAHOR [Suspect]
     Dosage: UNK
     Route: 048
     Dates: start: 2009
  2. LYRICA [Suspect]
     Dosage: UNK
     Route: 048
  3. CARDENSIEL [Concomitant]
     Dosage: 10 MG, UNK
  4. COVERAM [Concomitant]
     Dosage: 10 MG, UNK
  5. ALDACTAZINE [Concomitant]
     Dosage: 1 DF, DAILY
  6. METFORMIN [Concomitant]
     Dosage: 1 G, 3X/DAY
  7. ALLOPURINOL [Concomitant]
     Dosage: 300 MG, UNK
  8. ESOMEPRAZOLE [Concomitant]
     Dosage: 20 MG, UNK
  9. IKOREL [Concomitant]
     Dosage: 40 MG (2 DOSAGE FORMS OF 20 MG), DAILY
  10. KARDEGIC [Concomitant]
     Dosage: 75 MG, DAILY

REACTIONS (2)
  - Blood creatine phosphokinase increased [Recovering/Resolving]
  - Hypertension [Unknown]
